FAERS Safety Report 9181055 (Version 2)
Quarter: 2013Q2

REPORT INFORMATION
  Report Type: Spontaneous
  Country: US (occurrence: None)
  Receive Date: 20130320
  Receipt Date: 20130514
  Transmission Date: 20140414
  Serious: Yes (Other)
  Sender: FDA-Public Use
  Company Number: JPI-P-030462

PATIENT
  Age: 36 Year
  Sex: Female
  Weight: 97.52 kg

DRUGS (6)
  1. XYREM [Suspect]
     Indication: NARCOLEPSY
     Route: 048
     Dates: start: 2006
  2. XYREM [Suspect]
     Indication: SOMNOLENCE
     Route: 048
     Dates: start: 2006
  3. AMPHETAMINE ASPARTATE; AMPHETAMINE SULFATE; DETROAMPHETAMINE SACCHARATE; DEXTROAMPHETAMINE SULFATE [Concomitant]
  4. LISINOPRIL [Concomitant]
  5. FLUOXETINE [Concomitant]
  6. VALACYCLOVIR HYDROCHLORIDE [Concomitant]

REACTIONS (3)
  - Fall [None]
  - Foot fracture [None]
  - Ligament sprain [None]
